FAERS Safety Report 7078780-9 (Version None)
Quarter: 2010Q4

REPORT INFORMATION
  Report Type: 
  Country: None (occurrence: None)
  Receive Date: 20101102
  Receipt Date: 20101022
  Transmission Date: 20110411
  Serious: Yes (Other)
  Sender: FDA-Public Use
  Company Number: US-PFIZER INC-2010134762

PATIENT
  Sex: Male
  Weight: 96.599 kg

DRUGS (4)
  1. ZOLOFT [Suspect]
     Indication: DEPRESSION
     Dosage: 100 MG, UNK
     Route: 048
     Dates: start: 19920101, end: 20100301
  2. LEXAPRO [Suspect]
     Indication: DEPRESSION
     Dosage: 20MG, ONE AND A HALF PILL DAILY
     Route: 048
     Dates: start: 20100101
  3. CYMBALTA [Suspect]
     Indication: DEPRESSION
     Dosage: 60 MG, 1X/DAY
     Route: 048
     Dates: start: 20100101, end: 20100101
  4. WELLBUTRIN [Suspect]
     Indication: DEPRESSION
     Dosage: UNK
     Route: 048
     Dates: start: 20100101, end: 20100101

REACTIONS (6)
  - DRUG INEFFECTIVE [None]
  - FATIGUE [None]
  - KNEE ARTHROPLASTY [None]
  - SOMNOLENCE [None]
  - SUICIDAL BEHAVIOUR [None]
  - SURGERY [None]
